FAERS Safety Report 12526837 (Version 2)
Quarter: 2016Q3

REPORT INFORMATION
  Report Type: Spontaneous
  Country: US (occurrence: US)
  Receive Date: 20160705
  Receipt Date: 20160802
  Transmission Date: 20161109
  Serious: Yes (Other)
  Sender: FDA-Public Use
  Company Number: US-BAYER-2016-126303

PATIENT
  Sex: Female
  Weight: 100.68 kg

DRUGS (1)
  1. MIRENA [Suspect]
     Active Substance: LEVONORGESTREL
     Indication: CONTRACEPTION
     Dosage: 20 MCG/24HR, CONT
     Route: 015
     Dates: start: 20120723

REACTIONS (5)
  - Device intolerance [Unknown]
  - Uterine perforation [Unknown]
  - Pelvic pain [Unknown]
  - Menstrual disorder [Unknown]
  - Genital swelling [Unknown]
